FAERS Safety Report 11371742 (Version 1)
Quarter: 2015Q3

REPORT INFORMATION
  Report Type: Other
  Country: FR (occurrence: FR)
  Receive Date: 20150812
  Receipt Date: 20150812
  Transmission Date: 20151125
  Serious: Yes (Hospitalization)
  Sender: FDA-Public Use
  Company Number: FR-MYLANLABS-2015M1025925

PATIENT

DRUGS (7)
  1. PLITICAN [Suspect]
     Active Substance: ALIZAPRIDE HYDROCHLORIDE
     Indication: ANTIEMETIC SUPPORTIVE CARE
     Dosage: 80 MG, QID
     Route: 042
     Dates: start: 20150504, end: 20150505
  2. DEXAMETHASONE MYLAN [Suspect]
     Active Substance: DEXAMETHASONE
     Indication: PRODUCT USED FOR UNKNOWN INDICATION
     Dosage: 5000 MG/M2, UNK
     Route: 042
     Dates: start: 20150504, end: 20150505
  3. IFOSFAMIDE EG [Suspect]
     Active Substance: IFOSFAMIDE
     Indication: ALVEOLAR RHABDOMYOSARCOMA
     Dosage: 3250 MG, UNK
     Route: 042
     Dates: start: 20150504, end: 20150505
  4. DOXORUBICINE                       /00330901/ [Suspect]
     Active Substance: DOXORUBICIN
     Indication: ALVEOLAR RHABDOMYOSARCOMA
     Dosage: 32 MG, QID
     Route: 042
     Dates: start: 20150504, end: 20150505
  5. VINCRISTINE [Suspect]
     Active Substance: VINCRISTINE
     Indication: ALVEOLAR RHABDOMYOSARCOMA
     Dosage: 1.65 MG, QID
     Dates: start: 20150504, end: 20150504
  6. EMEND [Suspect]
     Active Substance: APREPITANT
     Indication: ANTIEMETIC SUPPORTIVE CARE
     Dosage: UNK
     Route: 048
     Dates: start: 20150504, end: 20150505
  7. COSMEGEN [Suspect]
     Active Substance: DACTINOMYCIN
     Indication: ALVEOLAR RHABDOMYOSARCOMA
     Dosage: 1200 ?G, QID
     Route: 042
     Dates: start: 20150504, end: 20150505

REACTIONS (5)
  - Encephalopathy [Recovered/Resolved]
  - Muscle contractions involuntary [Recovered/Resolved with Sequelae]
  - Somnolence [Recovered/Resolved]
  - Altered state of consciousness [Recovered/Resolved]
  - Agitation [Recovered/Resolved]

NARRATIVE: CASE EVENT DATE: 20150505
